FAERS Safety Report 10212615 (Version 1)
Quarter: 2014Q2

REPORT INFORMATION
  Report Type: Spontaneous
  Country: FR (occurrence: FR)
  Receive Date: 20140602
  Receipt Date: 20140602
  Transmission Date: 20141212
  Serious: Yes (Other)
  Sender: FDA-Public Use
  Company Number: FR-GILEAD-2014-0103889

PATIENT
  Age: 52 Year
  Sex: Male

DRUGS (3)
  1. TRUVADA [Suspect]
     Indication: HIV INFECTION
     Dosage: UNK
     Route: 048
     Dates: start: 20130426, end: 20131115
  2. NORVIR [Concomitant]
  3. REYATAZ [Concomitant]

REACTIONS (2)
  - Condition aggravated [Recovered/Resolved]
  - Renal failure chronic [Recovered/Resolved]
